FAERS Safety Report 5705147-5 (Version None)
Quarter: 2008Q2

REPORT INFORMATION
  Report Type: 
  Country: None (occurrence: None)
  Receive Date: 20080414
  Receipt Date: 20080402
  Transmission Date: 20081010
  Serious: Yes (Death, Life-Threatening, Hospitalization)
  Sender: FDA-Public Use
  Company Number: CL-GENENTECH-259082

PATIENT
  Age: 70 Year
  Sex: Female

DRUGS (3)
  1. MABTHERA [Suspect]
     Indication: DERMATOMYOSITIS
     Dosage: 1 G, UNK
     Route: 048
     Dates: start: 20080101, end: 20080101
  2. CHLORPHENIRAMINE MALEATE [Concomitant]
     Indication: DRUG USE FOR UNKNOWN INDICATION
     Dates: start: 20080101, end: 20080101
  3. BETAMETHASONE [Concomitant]
     Indication: DRUG USE FOR UNKNOWN INDICATION
     Dates: start: 20080101, end: 20080101

REACTIONS (3)
  - ACUTE RESPIRATORY FAILURE [None]
  - POLYMYOSITIS [None]
  - PULMONARY FIBROSIS [None]
